FAERS Safety Report 8268032-3 (Version None)
Quarter: 2012Q2

REPORT INFORMATION
  Report Type: 
  Country: None (occurrence: None)
  Receive Date: 20120409
  Receipt Date: 20120326
  Transmission Date: 20120825
  Serious: Yes (Other)
  Sender: FDA-Public Use
  Company Number: DE-MYLANLABS-2012S1006780

PATIENT
  Age: 37 Year
  Sex: Female

DRUGS (3)
  1. SULFASALAZINE [Suspect]
     Indication: COLITIS ULCERATIVE
     Route: 048
  2. AZATHIOPRINE [Suspect]
     Indication: COLITIS ULCERATIVE
     Route: 048
  3. PREDNISONE TAB [Suspect]
     Indication: COLITIS ULCERATIVE
     Route: 048

REACTIONS (3)
  - PREMATURE RUPTURE OF MEMBRANES [None]
  - UTERINE LEIOMYOMA [None]
  - MATERNAL EXPOSURE DURING PREGNANCY [None]
